FAERS Safety Report 12856914 (Version 1)
Quarter: 2016Q4

REPORT INFORMATION
  Report Type: Spontaneous
  Country: US (occurrence: US)
  Receive Date: 20161018
  Receipt Date: 20161018
  Transmission Date: 20170207
  Serious: No
  Sender: FDA-Public Use
  Company Number: US-PFIZER INC-2016482468

PATIENT
  Age: 58 Year
  Sex: Male
  Weight: 77.11 kg

DRUGS (7)
  1. GABAPENTIN. [Suspect]
     Active Substance: GABAPENTIN
     Indication: SWELLING
  2. LYRICA [Suspect]
     Active Substance: PREGABALIN
     Indication: BURNING SENSATION
     Dosage: 150 MG, 2X/DAY
     Route: 048
     Dates: start: 201412, end: 201603
  3. GABAPENTIN. [Suspect]
     Active Substance: GABAPENTIN
     Indication: NERVE INJURY
     Dosage: 300 MG, 2X/DAY
     Route: 048
     Dates: start: 201412, end: 201603
  4. LYRICA [Suspect]
     Active Substance: PREGABALIN
     Indication: ERYTHEMA
  5. GABAPENTIN. [Suspect]
     Active Substance: GABAPENTIN
     Indication: BURNING SENSATION
  6. LYRICA [Suspect]
     Active Substance: PREGABALIN
     Indication: SWELLING
  7. GABAPENTIN. [Suspect]
     Active Substance: GABAPENTIN
     Indication: ERYTHEMA

REACTIONS (5)
  - Drug ineffective for unapproved indication [Unknown]
  - Activities of daily living impaired [Not Recovered/Not Resolved]
  - Limb discomfort [Not Recovered/Not Resolved]
  - Hypoaesthesia [Not Recovered/Not Resolved]
  - Gait disturbance [Not Recovered/Not Resolved]

NARRATIVE: CASE EVENT DATE: 201512
